FAERS Safety Report 15797448 (Version 1)
Quarter: 2019Q1

REPORT INFORMATION
  Report Type: Report from Study
  Country: IT (occurrence: IT)
  Receive Date: 20190108
  Receipt Date: 20190108
  Transmission Date: 20190417
  Serious: Yes (Other)
  Sender: FDA-Public Use
  Company Number: IT-BAYER-2019-005169

PATIENT
  Age: 37 Year
  Sex: Female

DRUGS (2)
  1. LOW DOSE ASPIRIN [Suspect]
     Active Substance: ASPIRIN
     Dosage: UNK
  2. HEPARIN [Concomitant]
     Active Substance: HEPARIN SODIUM

REACTIONS (4)
  - Premature delivery [None]
  - Off label use [None]
  - Exposure during pregnancy [None]
  - Product use in unapproved indication [None]
